FAERS Safety Report 14650436 (Version 1)
Quarter: 2018Q1

REPORT INFORMATION
  Report Type: Report from Study
  Country: ES (occurrence: ES)
  Receive Date: 20180316
  Receipt Date: 20180316
  Transmission Date: 20180509
  Serious: Yes (Hospitalization)
  Sender: FDA-Public Use
  Company Number: ES-TEVA-2018-ES-869511

PATIENT
  Age: 95 Year
  Sex: Male

DRUGS (6)
  1. LEVOFLOXACIN. [Suspect]
     Active Substance: LEVOFLOXACIN
     Indication: IMMATURE RESPIRATORY SYSTEM
     Route: 048
  2. ENALAPRIL 5 MG COMPRIMIDO [Concomitant]
     Indication: HYPERTENSION
  3. LEVETIRACETAM 500 MG COMPRIMIDO [Concomitant]
  4. ADIRO 100 MG COMPRIMIDOS GASTRORRESISTENTES EFG [Concomitant]
     Active Substance: ASPIRIN
     Route: 048
  5. LAMOTRIGINA 50 MG COMPRIMIDO [Concomitant]
  6. OMEPRAZOL 20 MG C?PSULA [Concomitant]
     Route: 048

REACTIONS (3)
  - Abdominal pain [Recovering/Resolving]
  - Vomiting [Recovering/Resolving]
  - Diarrhoea haemorrhagic [Recovering/Resolving]
